FAERS Safety Report 5853652-3 (Version None)
Quarter: 2008Q3

REPORT INFORMATION
  Report Type: 
  Country: None (occurrence: None)
  Receive Date: 20080822
  Receipt Date: 20080813
  Transmission Date: 20090109
  Serious: Yes (Other)
  Sender: FDA-Public Use
  Company Number: US-BAYER-200813400BCC

PATIENT
  Age: 76 Year
  Sex: Male
  Weight: 97 kg

DRUGS (1)
  1. PHILLIPS MILK OF MAGNESIA CHERRY [Suspect]
     Indication: CONSTIPATION
     Route: 048
     Dates: start: 20080812

REACTIONS (2)
  - BLOOD GLUCOSE INCREASED [None]
  - BLOOD PRESSURE INCREASED [None]
